FAERS Safety Report 6504078-0 (Version None)
Quarter: 2009Q4

REPORT INFORMATION
  Report Type: 
  Country: None (occurrence: None)
  Receive Date: 20091217
  Receipt Date: 20091207
  Transmission Date: 20100525
  Serious: Yes (Hospitalization)
  Sender: FDA-Public Use
  Company Number: ES-ABBOTT-09P-144-0597466-00

PATIENT
  Age: 51 Year
  Sex: Male

DRUGS (6)
  1. KALETRA [Suspect]
     Indication: LIPODYSTROPHY ACQUIRED
     Route: 048
     Dates: start: 20090813, end: 20090913
  2. KALETRA [Suspect]
     Indication: HIV INFECTION
  3. DOBUPAL [Concomitant]
     Indication: DRUG USE FOR UNKNOWN INDICATION
     Route: 048
  4. OMEPRAZOLE [Concomitant]
     Indication: DRUG USE FOR UNKNOWN INDICATION
     Route: 048
     Dates: start: 20051219
  5. TRYPTIZOL [Concomitant]
     Indication: DRUG USE FOR UNKNOWN INDICATION
     Route: 048
  6. ORFIDAL [Concomitant]
     Indication: DRUG USE FOR UNKNOWN INDICATION
     Route: 048

REACTIONS (4)
  - DIARRHOEA [None]
  - MITRAL VALVE INCOMPETENCE [None]
  - PERICARDITIS [None]
  - PYREXIA [None]
